FAERS Safety Report 7457341-3 (Version None)
Quarter: 2011Q2

REPORT INFORMATION
  Report Type: 
  Country: None (occurrence: None)
  Receive Date: 20110504
  Receipt Date: 20100507
  Transmission Date: 20111010
  Serious: No
  Sender: FDA-Public Use
  Company Number: US-KINGPHARMUSA00001-K201000583

PATIENT
  Sex: Male

DRUGS (8)
  1. NEURONTIN [Concomitant]
     Indication: DYSTONIA
     Dosage: UNK
  2. AVINZA [Suspect]
     Indication: PAIN
     Dosage: 90 MG, QD
     Route: 048
     Dates: start: 20070101, end: 20090101
  3. VICODIN [Concomitant]
     Indication: BREAKTHROUGH PAIN
     Dosage: UNK
  4. AVINZA [Suspect]
     Dosage: 60 MG, BID
     Route: 048
     Dates: start: 20090101, end: 20100401
  5. LISINOPRIL [Concomitant]
     Indication: HYPERTENSION
     Dosage: UNK
  6. AVINZA [Suspect]
     Dosage: 60 MG, TID
     Route: 048
     Dates: start: 20100401, end: 20100401
  7. AVINZA [Suspect]
     Dosage: 60 MG, BID
     Route: 048
     Dates: start: 20100401
  8. SOMA [Concomitant]
     Indication: DYSTONIA
     Dosage: UNK

REACTIONS (2)
  - DRUG INEFFECTIVE [None]
  - CONSTIPATION [None]
